FAERS Safety Report 24711362 (Version 3)
Quarter: 2025Q2

REPORT INFORMATION
  Report Type: Spontaneous
  Country: AR (occurrence: AR)
  Receive Date: 20241209
  Receipt Date: 20250417
  Transmission Date: 20250716
  Serious: Yes (Hospitalization, Other)
  Sender: SANDOZ
  Company Number: AR-002147023-NVSC2021AR070408

PATIENT
  Age: 2 Year
  Sex: Male
  Weight: 20.8 kg

DRUGS (4)
  1. OMNITROPE [Suspect]
     Active Substance: SOMATROPIN
     Dosage: 0.3 MG, QD
     Route: 058
  2. OMNITROPE [Suspect]
     Active Substance: SOMATROPIN
     Dosage: 5 MG, QW
     Route: 058
     Dates: start: 20191217
  3. OMNITROPE [Suspect]
     Active Substance: SOMATROPIN
     Route: 058
     Dates: start: 20191217
  4. OMNITROPE [Suspect]
     Active Substance: SOMATROPIN
     Indication: Prader-Willi syndrome
     Dosage: 0.2 MG, QD (OMNITROPE 5 MG/1.5 ML)
     Route: 058
     Dates: start: 20191217

REACTIONS (16)
  - Bronchospasm [Unknown]
  - Hypotonia [Unknown]
  - Hospitalisation [Unknown]
  - Respiratory tract infection [Unknown]
  - Epilepsy [Unknown]
  - Seizure [Unknown]
  - Partial seizures [Unknown]
  - Muscle atrophy [Unknown]
  - Contusion [Unknown]
  - Dysphagia [Unknown]
  - Application site bruise [Unknown]
  - Genital odour [Unknown]
  - Hair growth abnormal [Unknown]
  - Injection site haematoma [Unknown]
  - Lack of application site rotation [Unknown]
  - Therapeutic product effect incomplete [Unknown]

NARRATIVE: CASE EVENT DATE: 20220301
